FAERS Safety Report 19683127 (Version 1)
Quarter: 2021Q3

REPORT INFORMATION
  Report Type: Spontaneous
  Country: US (occurrence: US)
  Receive Date: 20210810
  Receipt Date: 20210810
  Transmission Date: 20211014
  Serious: No
  Sender: FDA-Public Use
  Company Number: US-HORIZON THERAPEUTICS-HZN-2021-002830

PATIENT
  Sex: Female

DRUGS (1)
  1. TEPEZZA [Suspect]
     Active Substance: TEPROTUMUMAB-TRBW
     Indication: BASEDOW^S DISEASE
     Dosage: UNK
     Route: 065
     Dates: start: 20210507

REACTIONS (5)
  - Ocular hyperaemia [Unknown]
  - Eye swelling [Recovering/Resolving]
  - Headache [Unknown]
  - Eye pruritus [Recovered/Resolved]
  - Scleral cyst [Unknown]
